FAERS Safety Report 14376143 (Version 2)
Quarter: 2018Q1

REPORT INFORMATION
  Report Type: Report from Study
  Country: CZ (occurrence: CZ)
  Receive Date: 20180111
  Receipt Date: 20180128
  Transmission Date: 20180509
  Serious: Yes (Hospitalization)
  Sender: FDA-Public Use
  Company Number: CZ-B.I. PHARMACEUTICALS,INC./RIDGEFIELD-2017-BI-049337

PATIENT
  Sex: Male

DRUGS (2)
  1. PRADAXA [Suspect]
     Active Substance: DABIGATRAN ETEXILATE MESYLATE
     Indication: CEREBROVASCULAR ACCIDENT PROPHYLAXIS
     Route: 048
  2. PRADAXA [Suspect]
     Active Substance: DABIGATRAN ETEXILATE MESYLATE
     Indication: ATRIAL FIBRILLATION

REACTIONS (9)
  - Anaemia [Unknown]
  - Renal failure [Unknown]
  - Pericardial drainage [Recovered/Resolved]
  - Haematuria [Unknown]
  - Anuria [Unknown]
  - Occult blood [Unknown]
  - Accidental overdose [Unknown]
  - Renal failure [Recovered/Resolved]
  - Iron deficiency [Unknown]

NARRATIVE: CASE EVENT DATE: 2016
